FAERS Safety Report 10233718 (Version 1)
Quarter: 2014Q2

REPORT INFORMATION
  Report Type: Spontaneous
  Country: US (occurrence: US)
  Receive Date: 20140612
  Receipt Date: 20140612
  Transmission Date: 20141212
  Serious: Yes (Hospitalization, Other)
  Sender: FDA-Public Use
  Company Number: US-TEVA-487034USA

PATIENT
  Age: 38 Year
  Sex: Female

DRUGS (6)
  1. PROAIR HFA [Suspect]
     Indication: PRODUCT USED FOR UNKNOWN INDICATION
     Dosage: 2 PUFFS 4 TIMES PER DAY
     Dates: start: 2009
  2. SINGULAIR [Suspect]
     Indication: PRODUCT USED FOR UNKNOWN INDICATION
     Dosage: 2 PUFFS 4 TIMES PER DAY
  3. HYDROCHLOROTHIAZIDE [Suspect]
     Indication: PRODUCT USED FOR UNKNOWN INDICATION
  4. VENTOLIN HFA [Suspect]
     Indication: PRODUCT USED FOR UNKNOWN INDICATION
  5. INTRAUTERINE DEVICE [Suspect]
     Indication: PRODUCT USED FOR UNKNOWN INDICATION
  6. ASMANEX [Concomitant]

REACTIONS (19)
  - Bronchitis [Unknown]
  - Pneumonia [Unknown]
  - Peripartum cardiomyopathy [Unknown]
  - Exposure during pregnancy [Unknown]
  - Pregnancy [Recovered/Resolved]
  - Drug administration error [Unknown]
  - Electrocardiogram change [Unknown]
  - Blood pressure increased [Recovered/Resolved]
  - Asthma [Unknown]
  - Drug ineffective [Unknown]
  - Fluid retention [Unknown]
  - Cardiac disorder [Unknown]
  - Nasopharyngitis [Unknown]
  - Abdominal distension [Unknown]
  - Abdominal discomfort [Unknown]
  - Orthopnoea [Unknown]
  - Intra-uterine contraceptive device removal [Unknown]
  - Weight increased [Recovering/Resolving]
  - Fluid retention [Recovering/Resolving]
